FAERS Safety Report 4940617-9 (Version None)
Quarter: 2006Q1

REPORT INFORMATION
  Report Type: 
  Country: None (occurrence: None)
  Receive Date: 20060127
  Receipt Date: 20051109
  Transmission Date: 20060701
  Serious: Yes (Death)
  Sender: FDA-Public Use
  Company Number: 2005-US-00913

PATIENT
  Age: 42 Year
  Sex: 0

DRUGS (1)
  1. CLOZAPINE [Suspect]
     Indication: SCHIZOPHRENIA
     Dosage: 100 MG QD
     Dates: start: 20000101, end: 20051001

REACTIONS (1)
  - ROAD TRAFFIC ACCIDENT [None]
